FAERS Safety Report 5060888-0 (Version None)
Quarter: 2006Q3

REPORT INFORMATION
  Report Type: 
  Country: None (occurrence: None)
  Receive Date: 20060725
  Receipt Date: 20051219
  Transmission Date: 20061208
  Serious: Yes (Other)
  Sender: FDA-Public Use
  Company Number: PHNU2005DE04213

PATIENT
  Age: 78 Year
  Sex: Male
  Weight: 62 kg

DRUGS (6)
  1. TRENANTONE [Concomitant]
     Dosage: 1 DF, Q3MO
     Route: 065
     Dates: start: 20010101
  2. ZOMETA [Suspect]
     Indication: PROSTATE CANCER METASTATIC
     Dosage: 4 MG, QMO
     Route: 042
     Dates: start: 20040401, end: 20051201
  3. ENALAPRIL MALEATE [Concomitant]
     Dosage: 20 MG, QD
     Route: 048
     Dates: start: 20030116
  4. AMINEURIN [Concomitant]
     Dosage: 25 MG, QD
     Route: 048
     Dates: start: 20040920
  5. DURAGESIC-100 [Concomitant]
     Dosage: 25 MG, Q72H
     Route: 048
     Dates: start: 20040820
  6. EMSELEX [Concomitant]
     Dosage: 7.5 MG, QD
     Route: 048
     Dates: start: 20050828

REACTIONS (6)
  - BONE DISORDER [None]
  - DENTAL TREATMENT [None]
  - DRY SOCKET [None]
  - IMPAIRED HEALING [None]
  - TOOTH EXTRACTION [None]
  - WOUND TREATMENT [None]
